FAERS Safety Report 13386988 (Version 1)
Quarter: 2017Q1

REPORT INFORMATION
  Report Type: Spontaneous
  Country: US (occurrence: US)
  Receive Date: 20170330
  Receipt Date: 20170330
  Transmission Date: 20170429
  Serious: Yes (Death, Hospitalization)
  Sender: FDA-Public Use
  Company Number: US-PFIZER INC-2017136543

PATIENT
  Age: 87 Year
  Sex: Female
  Weight: 47 kg

DRUGS (1)
  1. IBRANCE [Suspect]
     Active Substance: PALBOCICLIB
     Indication: BREAST CANCER
     Dosage: 125 MG, CYCLIC, ^ONE CAPSULE EVERYDAY FOR 21 DAYS AND THEN OFF FOR 7 DAYS^
     Dates: end: 20170310

REACTIONS (3)
  - Neoplasm progression [Fatal]
  - Pain [Unknown]
  - Dehydration [Unknown]
